FAERS Safety Report 20891847 (Version 1)
Quarter: 2022Q2

REPORT INFORMATION
  Report Type: Spontaneous
  Country: CN (occurrence: CN)
  Receive Date: 20220530
  Receipt Date: 20220530
  Transmission Date: 20220720
  Serious: Yes (Other)
  Sender: FDA-Public Use
  Company Number: CN-PFIZER INC-202200761637

PATIENT
  Age: 49 Year
  Sex: Male

DRUGS (1)
  1. VIAGRA [Suspect]
     Active Substance: SILDENAFIL CITRATE
     Dosage: UNK
     Dates: start: 2009

REACTIONS (7)
  - Tonsillar inflammation [Unknown]
  - Haematochezia [Recovered/Resolved]
  - Pyrexia [Unknown]
  - Constipation [Recovered/Resolved]
  - Dry throat [Unknown]
  - Laryngitis [Recovered/Resolved]
  - Sputum increased [Unknown]
